FAERS Safety Report 5897400-X (Version None)
Quarter: 2008Q3

REPORT INFORMATION
  Report Type: 
  Country: None (occurrence: None)
  Receive Date: 20080829
  Receipt Date: 20080528
  Transmission Date: 20090109
  Serious: No
  Sender: FDA-Public Use
  Company Number: US-1166428

PATIENT
  Sex: Female
  Weight: 65.7716 kg

DRUGS (11)
  1. NEVANAC [Suspect]
     Indication: MACULAR OEDEMA
     Dosage: SEE IMAGE
     Route: 047
     Dates: start: 20080320
  2. NEVANAC [Suspect]
  3. NEVANAC [Suspect]
  4. NEVANAC [Suspect]
  5. ECONOPRED PLUS SUSPENSION [Suspect]
     Indication: PROPHYLAXIS
     Dosage: (OPHTHALMIC)
     Route: 047
  6. LEVOTHYROXINE SODIUM [Concomitant]
  7. DILTIAZEM HCL [Concomitant]
  8. DIOVAN [Concomitant]
  9. LIPITOR [Concomitant]
  10. FOSAMAX [Concomitant]
  11. ADVAIR DISKUS 100/50 [Concomitant]

REACTIONS (3)
  - DRUG INEFFECTIVE [None]
  - DYSGEUSIA [None]
  - WEIGHT INCREASED [None]
